FAERS Safety Report 24434280 (Version 1)
Quarter: 2024Q4

REPORT INFORMATION
  Report Type: Spontaneous
  Country: US (occurrence: US)
  Receive Date: 20241014
  Receipt Date: 20241014
  Transmission Date: 20250115
  Serious: Yes (Other)
  Sender: SANOFI AVENTIS
  Company Number: US-SA-2024SA293653

PATIENT
  Sex: Male
  Weight: 93.18 kg

DRUGS (9)
  1. DUPIXENT [Suspect]
     Active Substance: DUPILUMAB
     Indication: Dermatitis atopic
     Dosage: 300 MG, QOW
     Route: 058
     Dates: start: 2019
  2. TACROLIMUS [Concomitant]
     Active Substance: TACROLIMUS
     Dosage: UNK
  3. FINASTERIDE [Concomitant]
     Active Substance: FINASTERIDE
     Dosage: UNK
  4. TAMSULOSIN HYDROCHLORIDE [Concomitant]
     Active Substance: TAMSULOSIN HYDROCHLORIDE
     Dosage: UNK
  5. ALPHA LIPOIC ACID [Concomitant]
     Active Substance: .ALPHA.-LIPOIC ACID
     Dosage: UNK
  6. COENZYME Q10 [Concomitant]
     Active Substance: DIETARY SUPPLEMENT\UBIDECARENONE
     Dosage: UNK
  7. MAGNESIUM [Concomitant]
     Active Substance: MAGNESIUM
     Dosage: UNK
  8. VITAMIN B12 [Concomitant]
     Active Substance: CYANOCOBALAMIN
     Dosage: UNK
  9. ASPIRIN [Concomitant]
     Active Substance: ASPIRIN
     Dosage: UNK
     Route: 048

REACTIONS (7)
  - Neuropathy peripheral [Recovering/Resolving]
  - Joint range of motion decreased [Recovering/Resolving]
  - Hypoaesthesia [Recovering/Resolving]
  - Dry skin [Recovering/Resolving]
  - Skin exfoliation [Recovering/Resolving]
  - Pruritus [Recovering/Resolving]
  - Dermatitis atopic [Recovering/Resolving]
